FAERS Safety Report 4539933-4 (Version None)
Quarter: 2004Q4

REPORT INFORMATION
  Report Type: 
  Country: None (occurrence: None)
  Receive Date: 20041223
  Receipt Date: 20041217
  Transmission Date: 20050328
  Serious: Yes (Death)
  Sender: FDA-Public Use
  Company Number: 200411131BVD

PATIENT
  Age: 81 Year
  Sex: Male
  Weight: 53 kg

DRUGS (8)
  1. AVELOX [Suspect]
     Indication: BRONCHITIS
     Dosage: 400 MG, QD, ORAL
     Route: 048
     Dates: start: 20041001
  2. ASPIRIN [Concomitant]
  3. LIQUAEMIN INJ [Concomitant]
  4. MADOPAR [Concomitant]
  5. ACC [Concomitant]
  6. NEUROCIL [Concomitant]
  7. RISPERDAL [Concomitant]
  8. APONAL [Concomitant]

REACTIONS (4)
  - ARRHYTHMIA [None]
  - ASPHYXIA [None]
  - ASPIRATION [None]
  - SUDDEN CARDIAC DEATH [None]
